FAERS Safety Report 23125753 (Version 2)
Quarter: 2024Q4

REPORT INFORMATION
  Report Type: Spontaneous
  Country: US (occurrence: US)
  Receive Date: 20231030
  Receipt Date: 20241016
  Transmission Date: 20250114
  Serious: No
  Sender: SANOFI AVENTIS
  Company Number: US-SA-SAC20231025001245

PATIENT
  Age: 57 Year
  Sex: Male

DRUGS (1)
  1. DUPIXENT [Suspect]
     Active Substance: DUPILUMAB
     Indication: Asthma
     Dosage: 300 MG, QOW
     Route: 058
     Dates: start: 202101

REACTIONS (4)
  - Arthropod bite [Not Recovered/Not Resolved]
  - Erythema [Not Recovered/Not Resolved]
  - Nasal congestion [Unknown]
  - Ankle operation [Unknown]
